FAERS Safety Report 4283453-1 (Version None)
Quarter: 2004Q1

REPORT INFORMATION
  Report Type: 
  Country: None (occurrence: None)
  Receive Date: 20040121
  Receipt Date: 20030116
  Transmission Date: 20041129
  Serious: Yes (Other)
  Sender: FDA-Public Use
  Company Number: A03200300101

PATIENT
  Age: 81 Year
  Sex: Female
  Weight: 57.6068 kg

DRUGS (5)
  1. PLAVIX [Suspect]
     Indication: OPTIC ISCHAEMIC NEUROPATHY
     Dosage: 75 MG QD - ORAL
     Route: 048
     Dates: start: 20010101
  2. ALENDRONATE SODIUM [Concomitant]
  3. BENAZEPRIL HCL [Concomitant]
  4. LIPID LOWERING AGENTS [Concomitant]
  5. TAMOXIFEN [Concomitant]

REACTIONS (1)
  - EYE HAEMORRHAGE [None]
